FAERS Safety Report 18761624 (Version 1)
Quarter: 2021Q1

REPORT INFORMATION
  Report Type: Spontaneous
  Country: US (occurrence: US)
  Receive Date: 20210119
  Receipt Date: 20210119
  Transmission Date: 20210419
  Serious: No
  Sender: FDA-Public Use
  Company Number: None

PATIENT
  Age: 40 Year
  Sex: Female
  Weight: 154.22 kg

DRUGS (1)
  1. COSENTYX [Suspect]
     Active Substance: SECUKINUMAB
     Indication: PSORIASIS
     Dosage: INJECT 300MG (2 PENS) SUBCUTANEOUSLY EVERY WEEK FOR 5  WEEKS AS DIRECTED
     Route: 058
     Dates: start: 202001

REACTIONS (1)
  - Bronchitis [None]
